FAERS Safety Report 5656132-3 (Version None)
Quarter: 2008Q1

REPORT INFORMATION
  Report Type: 
  Country: None (occurrence: None)
  Receive Date: 20080305
  Receipt Date: 20080222
  Transmission Date: 20080703
  Serious: Yes (Hospitalization)
  Sender: FDA-Public Use
  Company Number: 20084707

PATIENT
  Sex: Male

DRUGS (1)
  1. LIORESAL [Suspect]
     Indication: MUSCLE SPASTICITY
     Dosage: MCG, DAILY, INTRATHECAL
     Route: 037

REACTIONS (7)
  - CARDIOVASCULAR DISORDER [None]
  - DRUG INEFFECTIVE [None]
  - HEADACHE [None]
  - MUSCLE SPASTICITY [None]
  - PARAESTHESIA [None]
  - PNEUMONIA [None]
  - RESPIRATORY DISORDER [None]
